FAERS Safety Report 15644389 (Version 4)
Quarter: 2019Q3

REPORT INFORMATION
  Report Type: Spontaneous
  Country: US (occurrence: US)
  Receive Date: 20181121
  Receipt Date: 20190708
  Transmission Date: 20191004
  Serious: No
  Sender: FDA-Public Use
  Company Number: US-PFIZER INC-2018476554

PATIENT
  Age: 54 Year
  Sex: Female

DRUGS (3)
  1. INSULIN [Concomitant]
     Active Substance: INSULIN NOS
     Indication: TYPE 2 DIABETES MELLITUS
     Dosage: UNK
  2. LYRICA [Suspect]
     Active Substance: PREGABALIN
     Indication: TYPE 2 DIABETES MELLITUS
     Dosage: 300 MG, 2X/DAY (150 MG EACH MORNING, 450MG EACH EVENING)
  3. LYRICA [Suspect]
     Active Substance: PREGABALIN
     Indication: DIABETIC NEUROPATHY

REACTIONS (4)
  - Product prescribing issue [Unknown]
  - Off label use [Unknown]
  - Prescribed overdose [Unknown]
  - Insomnia [Unknown]
